FAERS Safety Report 10171879 (Version 1)
Quarter: 2014Q2

REPORT INFORMATION
  Report Type: Spontaneous
  Country: TR (occurrence: None)
  Receive Date: 20140512
  Receipt Date: 20140512
  Transmission Date: 20141212
  Serious: Yes (Hospitalization)
  Sender: FDA-Public Use
  Company Number: 2329518

PATIENT
  Age: 55 Year
  Sex: Female

DRUGS (2)
  1. METHOTREXATE [Suspect]
     Indication: RHEUMATOID ARTHRITIS
     Dosage: 15 MG MILLIGRAM(S), 1 WEEK, UNKNOWN
  2. PREDNISONE [Suspect]
     Indication: RHEUMATOID ARTHRITIS
     Dosage: 10 MG MILLIGRAM(S), 1 DAY, UNKNOWN

REACTIONS (6)
  - Acute hepatic failure [None]
  - Drug interaction [None]
  - Hepatitis cholestatic [None]
  - Ascites [None]
  - Encephalopathy [None]
  - Liver transplant [None]
